FAERS Safety Report 7304672-3 (Version None)
Quarter: 2011Q1

REPORT INFORMATION
  Report Type: 
  Country: None (occurrence: None)
  Receive Date: 20110222
  Receipt Date: 20110207
  Transmission Date: 20110831
  Serious: Yes (Life-Threatening, Other)
  Sender: FDA-Public Use
  Company Number: JP-CELGENEUS-087-21880-10112252

PATIENT
  Sex: Female
  Weight: 58.7 kg

DRUGS (22)
  1. GASTER D [Concomitant]
     Indication: PROPHYLAXIS
     Route: 048
     Dates: start: 20100210
  2. MAGLAX [Concomitant]
     Indication: PROPHYLAXIS
     Route: 048
     Dates: start: 20100210
  3. SAWACILLIN [Concomitant]
     Indication: MEDIASTINAL ABSCESS
  4. LENADEX [Suspect]
     Indication: MULTIPLE MYELOMA
     Route: 048
     Dates: start: 20100904, end: 20100908
  5. BAKTAR [Concomitant]
     Indication: PROPHYLAXIS
     Route: 048
     Dates: start: 20100210
  6. REVLIMID [Suspect]
     Route: 048
     Dates: start: 20101026, end: 20101108
  7. ASPIRIN [Concomitant]
     Indication: PROPHYLAXIS
     Route: 048
     Dates: start: 20100904, end: 20100908
  8. DALACIN [Concomitant]
     Indication: MEDIASTINAL ABSCESS
  9. SAWACILLIN [Concomitant]
     Indication: PROPHYLAXIS
     Route: 048
     Dates: start: 20101002, end: 20101010
  10. FLOMOX [Concomitant]
     Indication: PAIN
     Route: 065
     Dates: start: 20100906
  11. REVLIMID [Suspect]
     Route: 048
     Dates: start: 20101019, end: 20101025
  12. REVLIMID [Suspect]
     Route: 048
     Dates: start: 20101130, end: 20101206
  13. DALACIN [Concomitant]
     Indication: PROPHYLAXIS
     Route: 048
     Dates: start: 20101002, end: 20101010
  14. REVLIMID [Suspect]
     Indication: MULTIPLE MYELOMA
     Route: 048
     Dates: start: 20100904, end: 20100908
  15. REVLIMID [Suspect]
     Route: 048
     Dates: start: 20101005, end: 20101010
  16. REVLIMID [Suspect]
     Route: 048
     Dates: start: 20101214, end: 20101220
  17. REVLIMID [Suspect]
     Route: 048
     Dates: start: 20101221, end: 20110104
  18. MUCOSTA [Concomitant]
     Indication: PROPHYLAXIS
     Route: 048
     Dates: start: 20100210
  19. NORVASC [Concomitant]
     Indication: HYPERTENSION
     Route: 048
     Dates: start: 20100210
  20. MORPHES [Concomitant]
     Indication: MULTIPLE MYELOMA
     Route: 048
     Dates: start: 20100927
  21. REVLIMID [Suspect]
     Route: 048
     Dates: start: 20101116, end: 20101129
  22. PANTETHINE [Concomitant]
     Indication: PROPHYLAXIS
     Route: 048
     Dates: start: 20100210

REACTIONS (3)
  - NEUTROPHIL COUNT DECREASED [None]
  - MEDIASTINAL ABSCESS [None]
  - DRUG ERUPTION [None]
